FAERS Safety Report 7305228-9 (Version None)
Quarter: 2011Q1

REPORT INFORMATION
  Report Type: 
  Country: None (occurrence: None)
  Receive Date: 20110222
  Receipt Date: 20110217
  Transmission Date: 20110831
  Serious: Yes (Hospitalization, Other)
  Sender: FDA-Public Use
  Company Number: US-PFIZER INC-2010169020

PATIENT
  Sex: Male

DRUGS (1)
  1. CHANTIX [Suspect]
     Indication: SMOKING CESSATION THERAPY
     Dosage: 0.5MG + 1MG
     Dates: start: 20080911, end: 20081001

REACTIONS (10)
  - EMOTIONAL DISTRESS [None]
  - MENTAL DISORDER [None]
  - PANIC ATTACK [None]
  - CONFUSIONAL STATE [None]
  - IMPAIRED DRIVING ABILITY [None]
  - ANXIETY [None]
  - INSOMNIA [None]
  - DEPRESSION [None]
  - BIPOLAR DISORDER [None]
  - SUICIDAL IDEATION [None]
